FAERS Safety Report 5138782-6 (Version None)
Quarter: 2006Q4

REPORT INFORMATION
  Report Type: 
  Country: None (occurrence: None)
  Receive Date: 20061024
  Receipt Date: 20061006
  Transmission Date: 20070319
  Serious: Yes (Other)
  Sender: FDA-Public Use
  Company Number: DSA_28800_2006

PATIENT
  Age: 67 Year
  Sex: Female
  Weight: 100.7 kg

DRUGS (16)
  1. ATIVAN [Suspect]
     Dosage: DF
  2. ZARNESTRA [Suspect]
     Indication: ACUTE MYELOID LEUKAEMIA
     Dosage: 1200 MG Q DAY PO
     Route: 048
     Dates: start: 20020925, end: 20021009
  3. ITRACONAZOLE [Suspect]
     Dosage: DF
  4. OXYCODONE HCL [Suspect]
     Dosage: DF
  5. XANAX [Suspect]
     Dosage: DF
  6. IMDUR SR [Concomitant]
  7. LISINOPRIL [Concomitant]
  8. METOPROLOL TARTRATE [Concomitant]
  9. NORVASC [Concomitant]
  10. PREVACID [Concomitant]
  11. SYNTHROID [Concomitant]
  12. ZOLOFT [Concomitant]
  13. FLOVENT [Concomitant]
  14. GLYBURIDE [Concomitant]
  15. ACYCLOVIR [Concomitant]
  16. MYCELEX [Concomitant]

REACTIONS (5)
  - CATHETER RELATED INFECTION [None]
  - COORDINATION ABNORMAL [None]
  - FALL [None]
  - FEBRILE NEUTROPENIA [None]
  - GAIT DISTURBANCE [None]
